FAERS Safety Report 5152022-3 (Version None)
Quarter: 2006Q4

REPORT INFORMATION
  Report Type: 
  Country: None (occurrence: None)
  Receive Date: 20061116
  Receipt Date: 20061107
  Transmission Date: 20070319
  Serious: Yes (Hospitalization, Congenital Anomaly)
  Sender: FDA-Public Use
  Company Number: GB-ELI_LILLY_AND_COMPANY-GB200611001027

PATIENT
  Sex: Female
  Weight: 2.28 kg

DRUGS (2)
  1. OLANZAPINE [Suspect]
     Route: 064
  2. PAROXETINE HCL [Concomitant]
     Dosage: 40 MG, DAILY (1/D)
     Route: 064

REACTIONS (7)
  - AGITATION NEONATAL [None]
  - DRUG EXPOSURE DURING PREGNANCY [None]
  - DRUG WITHDRAWAL SYNDROME [None]
  - HYPOGLYCAEMIA [None]
  - PREMATURE BABY [None]
  - SMALL FOR DATES BABY [None]
  - SUPERNUMERARY NIPPLE [None]
